FAERS Safety Report 9625600 (Version 1)
Quarter: 2013Q4

REPORT INFORMATION
  Report Type: Spontaneous
  Country: US (occurrence: US)
  Receive Date: 20131016
  Receipt Date: 20131016
  Transmission Date: 20140711
  Serious: Yes (Hospitalization)
  Sender: FDA-Public Use
  Company Number: US-BAYER-2013-124117

PATIENT
  Age: 35 Year
  Sex: Female
  Weight: 92.52 kg

DRUGS (5)
  1. YASMIN [Suspect]
  2. NORVASC [Concomitant]
     Dosage: 10 MG, UNK
  3. ADVAIR [Concomitant]
     Dosage: 250/50 MG
  4. SINGULAIR [Concomitant]
     Dosage: 10 MG, UNK
  5. PREVACID [Concomitant]
     Indication: GASTROOESOPHAGEAL REFLUX DISEASE
     Dosage: 30 MG, UNK

REACTIONS (1)
  - Deep vein thrombosis [None]
